FAERS Safety Report 24299520 (Version 1)
Quarter: 2024Q3

REPORT INFORMATION
  Report Type: Spontaneous
  Country: US (occurrence: None)
  Receive Date: 20240909
  Receipt Date: 20240909
  Transmission Date: 20241016
  Serious: Yes (Hospitalization)
  Sender: Public
  Company Number: None

PATIENT
  Age: 77 Year
  Sex: Male

DRUGS (1)
  1. ADEMPAS [Suspect]
     Active Substance: RIOCIGUAT
     Indication: Pulmonary hypertension
     Dosage: 2MG TID ORAL
     Route: 048
     Dates: start: 20230731

REACTIONS (2)
  - Pulmonary mass [None]
  - Condition aggravated [None]

NARRATIVE: CASE EVENT DATE: 20240814
